FAERS Safety Report 8610214-2 (Version None)
Quarter: 2012Q3

REPORT INFORMATION
  Report Type: 
  Country: None (occurrence: None)
  Receive Date: 20120822
  Receipt Date: 20120720
  Transmission Date: 20120928
  Serious: Yes (Disabling, Other)
  Sender: FDA-Public Use
  Company Number: US-009507513-1205USA02891

PATIENT

DRUGS (3)
  1. CYANOCOBALAMIN [Concomitant]
     Dosage: UNK
     Dates: start: 20040101
  2. LEVOTHYROXINE SODIUM [Concomitant]
     Indication: HYPOTHYROIDISM
     Dosage: UNK
     Dates: start: 19790101
  3. FOSAMAX [Suspect]
     Indication: BONE LOSS
     Route: 048
     Dates: start: 19970101

REACTIONS (6)
  - STRESS FRACTURE [None]
  - OSTEOPOROSIS [None]
  - BONE LESION EXCISION [None]
  - PERNICIOUS ANAEMIA [None]
  - FEMUR FRACTURE [None]
  - LOW TURNOVER OSTEOPATHY [None]
